FAERS Safety Report 6778935-4 (Version None)
Quarter: 2010Q2

REPORT INFORMATION
  Report Type: 
  Country: None (occurrence: None)
  Receive Date: 20100520
  Receipt Date: 20090625
  Transmission Date: 20101027
  Serious: Yes (Other)
  Sender: FDA-Public Use
  Company Number: 2008058733

PATIENT
  Age: 55 Year
  Sex: Female
  Weight: 129 kg

DRUGS (14)
  1. PROVERA [Suspect]
     Indication: HORMONE REPLACEMENT THERAPY
     Dosage: 2.5 MG, ORAL
     Route: 048
     Dates: start: 19850101, end: 20010101
  2. MEDROXYPROGESTERONE ACETATE [Suspect]
     Indication: HORMONE REPLACEMENT THERAPY
     Dosage: 2.5 MG, ORAL
     Route: 048
     Dates: start: 19950101, end: 20010101
  3. PREMARIN [Suspect]
     Indication: HORMONE REPLACEMENT THERAPY
     Dosage: 1.25 MG
     Dates: start: 19850101, end: 20010101
  4. ESTROGENS () [Suspect]
     Indication: HORMONE REPLACEMENT THERAPY
     Dates: start: 19850101, end: 20010101
  5. KLOR-CON [Concomitant]
  6. LEVOBUNOLOL (LEVOBUNOLOL) [Concomitant]
  7. EFFEXOR [Concomitant]
  8. NEXIUM [Concomitant]
  9. PRILOSEC (OMEPRAZOLE) [Concomitant]
  10. ZIAC [Concomitant]
  11. FUROSEMIDE [Concomitant]
  12. DIAZEPAM [Concomitant]
  13. ZAROXOLYN [Concomitant]
  14. HYDRALAZINE HCL [Concomitant]

REACTIONS (1)
  - BREAST CANCER FEMALE [None]
